FAERS Safety Report 4307881-0 (Version None)
Quarter: 2004Q1

REPORT INFORMATION
  Report Type: 
  Country: None (occurrence: None)
  Receive Date: 20040226
  Receipt Date: 20030529
  Transmission Date: 20041129
  Serious: Yes (Other)
  Sender: FDA-Public Use
  Company Number: 2002088409US

PATIENT
  Sex: Female

DRUGS (1)
  1. CELEBREX [Suspect]
     Indication: ARTHRITIS
     Dosage: 200 MG, QD, ORAL; 400 MG, QD, ORAL
     Route: 048
     Dates: start: 20011101

REACTIONS (6)
  - CONDITION AGGRAVATED [None]
  - DERMATITIS [None]
  - DRUG INEFFECTIVE [None]
  - GASTROOESOPHAGEAL REFLUX DISEASE [None]
  - JOINT SWELLING [None]
  - RECTAL HAEMORRHAGE [None]
